FAERS Safety Report 8333463-X (Version None)
Quarter: 2012Q2

REPORT INFORMATION
  Report Type: 
  Country: None (occurrence: None)
  Receive Date: 20120503
  Receipt Date: 20120425
  Transmission Date: 20120825
  Serious: Yes (Life-Threatening, Other)
  Sender: FDA-Public Use
  Company Number: FR-COVIDIEN/TYCO HEALTHCARE/MALLINCKRODT-T201201591

PATIENT
  Age: 70 Year

DRUGS (1)
  1. TRAMADOL HCL [Suspect]
     Dosage: UNK

REACTIONS (2)
  - HYPOGLYCAEMIC COMA [None]
  - CONVULSION [None]
